FAERS Safety Report 9135020 (Version 3)
Quarter: 2013Q4

REPORT INFORMATION
  Report Type: Spontaneous
  Country: US (occurrence: US)
  Receive Date: 20130304
  Receipt Date: 20131129
  Transmission Date: 20140711
  Serious: Yes (Hospitalization, Other)
  Sender: FDA-Public Use
  Company Number: US-009507513-1302USA011619

PATIENT
  Age: 66 Year
  Sex: Female

DRUGS (2)
  1. PEGINTRON [Suspect]
     Indication: HEPATITIS C
     Dosage: REDIPEN
     Dates: start: 20130217, end: 2013
  2. REBETOL [Suspect]
     Dosage: UNK
     Route: 048
     Dates: start: 20130212, end: 2013

REACTIONS (5)
  - Heat exhaustion [Unknown]
  - Cerebrovascular accident [Unknown]
  - Syncope [Unknown]
  - Headache [Unknown]
  - Dyspnoea [Unknown]
